FAERS Safety Report 25762025 (Version 3)
Quarter: 2025Q4

REPORT INFORMATION
  Report Type: Spontaneous
  Country: US (occurrence: US)
  Receive Date: 20250904
  Receipt Date: 20251003
  Transmission Date: 20260118
  Serious: No
  Sender: TAIHO ONCOLOGY INC
  Company Number: US-TAIHOP-2025-009326

PATIENT
  Age: 86 Year
  Sex: Female

DRUGS (2)
  1. LONSURF [Suspect]
     Active Substance: TIPIRACIL HYDROCHLORIDE\TRIFLURIDINE
     Indication: Colon cancer stage IV
     Dosage: 3 TABLETS (45MG) AND 2 TABLETS (30MG)?CYCLE UNKNOWN?DAILY DOSE: 75 MILLIGRAM(S)
     Route: 048
  2. LONSURF [Suspect]
     Active Substance: TIPIRACIL HYDROCHLORIDE\TRIFLURIDINE
     Dosage: 2 TABLETS (30MG) AND 2 TABLETS (30MG)?CYCLE UNKNOWN
     Route: 048

REACTIONS (5)
  - Weight decreased [Unknown]
  - Inappropriate schedule of product administration [Unknown]
  - White blood cell count decreased [Unknown]
  - Red blood cell count decreased [Recovering/Resolving]
  - Platelet count decreased [Unknown]
